FAERS Safety Report 21263801 (Version 1)
Quarter: 2022Q3

REPORT INFORMATION
  Report Type: Spontaneous
  Country: JP (occurrence: JP)
  Receive Date: 20220829
  Receipt Date: 20220829
  Transmission Date: 20221027
  Serious: Yes (Other)
  Sender: FDA-Public Use
  Company Number: JP-AUROBINDO-AUR-APL-2022-033830

PATIENT
  Age: 10 Month
  Sex: Male
  Weight: 8.8 kg

DRUGS (7)
  1. MELPHALAN [Suspect]
     Active Substance: MELPHALAN
     Indication: Juvenile chronic myelomonocytic leukaemia
     Dosage: 90 MILLIGRAM/SQ. METER, FOR 2 DAYS
     Route: 065
  2. BUSULFAN [Suspect]
     Active Substance: BUSULFAN
     Indication: Juvenile chronic myelomonocytic leukaemia
     Dosage: 1.2 MILLIGRAM/SQ. METER, FOR 4 DAYS
     Route: 065
  3. FLUDARABINE [Suspect]
     Active Substance: FLUDARABINE PHOSPHATE
     Indication: Juvenile chronic myelomonocytic leukaemia
     Dosage: 30 MILLIGRAM/SQ. METER, FOR 4 DAYS
     Route: 065
  4. MERCAPTOPURINE [Suspect]
     Active Substance: MERCAPTOPURINE
     Indication: Juvenile chronic myelomonocytic leukaemia
     Dosage: 50 MILLIGRAM/SQ. METER
     Route: 065
  5. PREDNISOLONE [Suspect]
     Active Substance: PREDNISOLONE
     Indication: Juvenile chronic myelomonocytic leukaemia
     Dosage: UNK
     Route: 065
  6. TACROLIMUS [Suspect]
     Active Substance: TACROLIMUS
     Indication: Juvenile chronic myelomonocytic leukaemia
     Dosage: UNK
     Route: 065
  7. AZACITIDINE [Concomitant]
     Active Substance: AZACITIDINE
     Indication: Product used for unknown indication
     Dosage: 75 MILLIGRAM/SQ. METER
     Route: 065

REACTIONS (8)
  - Pneumonia cytomegaloviral [Recovered/Resolved]
  - Pulmonary hypertension [Recovered/Resolved]
  - Depressed level of consciousness [Recovered/Resolved]
  - Nephrotic syndrome [Not Recovered/Not Resolved]
  - Hyperammonaemia [Recovered/Resolved]
  - Nausea [Recovered/Resolved]
  - Vomiting [Recovered/Resolved]
  - Hyperventilation [Recovered/Resolved]
